FAERS Safety Report 8463906-2 (Version None)
Quarter: 2012Q2

REPORT INFORMATION
  Report Type: 
  Country: None (occurrence: None)
  Receive Date: 20120625
  Receipt Date: 20120615
  Transmission Date: 20120825
  Serious: Yes (Death, Other)
  Sender: FDA-Public Use
  Company Number: CA-JNJFOC-20090302981

PATIENT
  Sex: Male

DRUGS (2)
  1. CHEMOTHERAPY [Concomitant]
     Indication: MYCOSIS FUNGOIDES
  2. REMICADE [Suspect]
     Indication: MYCOSIS FUNGOIDES
     Route: 042

REACTIONS (2)
  - RASH [None]
  - PROGRESSIVE MULTIFOCAL LEUKOENCEPHALOPATHY [None]
